FAERS Safety Report 10922761 (Version 2)
Quarter: 2015Q3

REPORT INFORMATION
  Report Type: Other
  Country: IT (occurrence: IT)
  Receive Date: 20150317
  Receipt Date: 20150708
  Transmission Date: 20151125
  Serious: Yes (Other)
  Sender: FDA-Public Use
  Company Number: IT-MYLANLABS-2015M1004003

PATIENT

DRUGS (1)
  1. IBUPROFEN LYSINE [Suspect]
     Active Substance: IBUPROFEN LYSINE
     Indication: MUSCULOSKELETAL PAIN
     Dosage: 400 MG, QD
     Route: 048
     Dates: start: 20150201, end: 20150202

REACTIONS (1)
  - Lip oedema [Recovered/Resolved]

NARRATIVE: CASE EVENT DATE: 20150203
